FAERS Safety Report 18311497 (Version 1)
Quarter: 2020Q3

REPORT INFORMATION
  Report Type: Spontaneous
  Country: US (occurrence: US)
  Receive Date: 20200924
  Receipt Date: 20200924
  Transmission Date: 20201103
  Serious: Yes (Life-Threatening)
  Sender: FDA-Public Use
  Company Number: None

PATIENT
  Age: 73 Year
  Sex: Male
  Weight: 67 kg

DRUGS (1)
  1. METOPROLOL (METOPROLOL SUCCINATE 25MG TAB) [Suspect]
     Active Substance: METOPROLOL SUCCINATE
     Indication: CARDIAC FAILURE CONGESTIVE
     Route: 048
     Dates: start: 20200630, end: 20200630

REACTIONS (4)
  - Abnormal behaviour [None]
  - Syncope [None]
  - Bradycardia [None]
  - Hypotension [None]

NARRATIVE: CASE EVENT DATE: 20200630
